FAERS Safety Report 22192654 (Version 1)
Quarter: 2023Q2

REPORT INFORMATION
  Report Type: Spontaneous
  Country: US (occurrence: US)
  Receive Date: 20230410
  Receipt Date: 20230410
  Transmission Date: 20230721
  Serious: Yes (Other)
  Sender: FDA-Public Use
  Company Number: US-APIL-2310539US

PATIENT
  Sex: Female
  Weight: 72.574 kg

DRUGS (3)
  1. BOTOX COSMETIC [Suspect]
     Active Substance: ONABOTULINUMTOXINA
     Indication: Skin wrinkling
     Dosage: UNK UNK, SINGLE
     Dates: start: 20220624, end: 20220624
  2. BOTOX COSMETIC [Suspect]
     Active Substance: ONABOTULINUMTOXINA
     Indication: Skin wrinkling
     Dosage: UNK UNK, SINGLE
     Dates: start: 20220624, end: 20220624
  3. JUVEDERM [Suspect]
     Active Substance: HYALURONIC ACID
     Indication: Product used for unknown indication
     Dosage: UNK, SINGLE
     Dates: start: 202206, end: 202206

REACTIONS (2)
  - Surgery [Unknown]
  - Drug ineffective [Unknown]

NARRATIVE: CASE EVENT DATE: 20220101
